FAERS Safety Report 25522947 (Version 2)
Quarter: 2025Q4

REPORT INFORMATION
  Report Type: Report from Study
  Country: CO (occurrence: CO)
  Receive Date: 20250707
  Receipt Date: 20251221
  Transmission Date: 20260118
  Serious: Yes (Other)
  Sender: TAKEDA
  Company Number: CO-TAKEDA-2025TUS059961

PATIENT
  Age: 4 Year
  Sex: Male

DRUGS (3)
  1. ADVATE [Suspect]
     Active Substance: ANTIHEMOPHILIC FACTOR, HUMAN RECOMBINANT
     Indication: Factor VIII deficiency
     Dosage: 5000 INTERNATIONAL UNIT
  2. ADVATE [Suspect]
     Active Substance: ANTIHEMOPHILIC FACTOR, HUMAN RECOMBINANT
  3. ADVATE [Suspect]
     Active Substance: ANTIHEMOPHILIC FACTOR, HUMAN RECOMBINANT

REACTIONS (18)
  - Haemarthrosis [Unknown]
  - Traumatic haematoma [Unknown]
  - Contusion [Unknown]
  - Brain injury [Unknown]
  - Epistaxis [Unknown]
  - Influenza like illness [Unknown]
  - Limb injury [Unknown]
  - Subgaleal haematoma [Unknown]
  - Ecchymosis [Unknown]
  - Haemorrhage [Unknown]
  - Nasal varices [Unknown]
  - Haematoma [Unknown]
  - Joint injury [Unknown]
  - Fall [Unknown]
  - Injury [Unknown]
  - Pain [Unknown]
  - Oedema [Unknown]
  - Feeling hot [Unknown]

NARRATIVE: CASE EVENT DATE: 20211222
